FAERS Safety Report 8673732 (Version 5)
Quarter: 2013Q2

REPORT INFORMATION
  Report Type: Spontaneous
  Country: US (occurrence: US)
  Receive Date: 20120719
  Receipt Date: 20130405
  Transmission Date: 20140414
  Serious: Yes (Hospitalization, Other)
  Sender: FDA-Public Use
  Company Number: US-009507513-2012SP011833

PATIENT
  Sex: Female
  Weight: 117.91 kg

DRUGS (2)
  1. NUVARING [Suspect]
     Indication: CONTRACEPTION
     Dosage: UNK
     Route: 067
     Dates: start: 20090821, end: 201003
  2. NUVARING [Suspect]
     Indication: MENSTRUATION IRREGULAR

REACTIONS (34)
  - Intervertebral discitis [Unknown]
  - Intracranial venous sinus thrombosis [Unknown]
  - Pulmonary embolism [Unknown]
  - Depression [Unknown]
  - Migraine [Unknown]
  - Hypertension [Unknown]
  - Muscular weakness [Unknown]
  - Lumbar radiculopathy [Recovered/Resolved]
  - Muscle spasms [Unknown]
  - Deep vein thrombosis [Unknown]
  - Pyrexia [Recovered/Resolved]
  - Back pain [Unknown]
  - Rash [Unknown]
  - Adverse drug reaction [Unknown]
  - Intervertebral disc operation [Unknown]
  - Bursitis [Unknown]
  - Mobility decreased [Unknown]
  - Hypercalcaemia [Unknown]
  - Stress [Unknown]
  - Asthenia [Recovering/Resolving]
  - Back pain [Unknown]
  - Hypertension [Unknown]
  - Local swelling [Unknown]
  - Blood pressure increased [Unknown]
  - Back pain [Unknown]
  - Lumbar spinal stenosis [Unknown]
  - Sleep apnoea syndrome [Unknown]
  - Type 2 diabetes mellitus [Unknown]
  - Metabolic disorder [Unknown]
  - Fatigue [Unknown]
  - Pain in extremity [Unknown]
  - Device expulsion [Unknown]
  - Menorrhagia [Unknown]
  - Dysmenorrhoea [Unknown]
